FAERS Safety Report 9738433 (Version 1)
Quarter: 2013Q4

REPORT INFORMATION
  Report Type: Spontaneous
  Country: FR (occurrence: FR)
  Receive Date: 20131208
  Receipt Date: 20131208
  Transmission Date: 20140711
  Serious: Yes (Hospitalization)
  Sender: FDA-Public Use
  Company Number: FR-ROCHE-1314208

PATIENT
  Age: 65 Year
  Sex: Female

DRUGS (17)
  1. MABTHERA [Suspect]
     Indication: POLYMYOSITIS
     Route: 042
     Dates: start: 20130423, end: 20130517
  2. PERINDOPRIL [Suspect]
     Indication: PRODUCT USED FOR UNKNOWN INDICATION
     Route: 048
     Dates: end: 20130611
  3. FUROSEMIDE [Suspect]
     Indication: PRODUCT USED FOR UNKNOWN INDICATION
     Route: 048
     Dates: end: 20130611
  4. VELMETIA [Suspect]
     Indication: PRODUCT USED FOR UNKNOWN INDICATION
     Route: 048
     Dates: end: 20130611
  5. VELMETIA [Suspect]
     Dosage: 50 MG/1000 MG
     Route: 065
  6. DIAMICRON [Suspect]
     Indication: PRODUCT USED FOR UNKNOWN INDICATION
     Route: 048
     Dates: end: 20130611
  7. DIAMICRON [Suspect]
     Dosage: 60 LP
     Route: 065
  8. LANSOPRAZOLE [Concomitant]
     Route: 065
  9. BROMAZEPAM [Concomitant]
  10. ASPIRIN DL-LYSINE [Concomitant]
     Route: 065
  11. ACEBUTOLOL [Concomitant]
     Route: 065
  12. ROSUVASTATIN CALCIUM [Concomitant]
     Route: 065
  13. IVABRADINE HYDROCHLORIDE [Concomitant]
     Route: 065
  14. PREDNISONE [Concomitant]
  15. OROCAL [Concomitant]
  16. ALENDRONATE SODIUM/CHOLECALCIFEROL [Concomitant]
  17. CARBIDOPA/LEVODOPA [Concomitant]

REACTIONS (1)
  - Renal failure acute [Recovered/Resolved]
